FAERS Safety Report 9449357 (Version 2)
Quarter: 2013Q3

REPORT INFORMATION
  Report Type: Spontaneous
  Country: PH (occurrence: PH)
  Receive Date: 20130808
  Receipt Date: 20130816
  Transmission Date: 20140515
  Serious: Yes (Other)
  Sender: FDA-Public Use
  Company Number: PH-ROCHE-1259583

PATIENT
  Age: 31 Year
  Sex: Female

DRUGS (3)
  1. ALTEPLASE [Suspect]
     Indication: DEEP VEIN THROMBOSIS
     Route: 065
  2. ENOXAPARIN [Suspect]
     Indication: ANTICOAGULANT THERAPY
     Route: 065
  3. WARFARIN [Suspect]
     Indication: ANTICOAGULANT THERAPY
     Route: 065

REACTIONS (2)
  - Pulmonary embolism [Recovering/Resolving]
  - Treatment failure [Unknown]
